FAERS Safety Report 9350715 (Version 1)
Quarter: 2013Q2

REPORT INFORMATION
  Report Type: Report from Study
  Country: MX (occurrence: MX)
  Receive Date: 20130617
  Receipt Date: 20130617
  Transmission Date: 20140414
  Serious: Yes (Other)
  Sender: FDA-Public Use
  Company Number: PHHY2012MX118350

PATIENT
  Age: 23 Year
  Sex: Male

DRUGS (3)
  1. TRILEPTAL [Suspect]
     Indication: CONVULSION
     Dosage: 300 MG, DAILY
     Route: 048
     Dates: start: 201209
  2. TRILEPTAL [Suspect]
     Dosage: 300 UNK, UNK
     Dates: end: 201304
  3. RISPERIDONE [Concomitant]
     Indication: AUTISM
     Dosage: 3 MG, DAILY
     Dates: start: 200612

REACTIONS (2)
  - Psychotic disorder [Not Recovered/Not Resolved]
  - Depression [Not Recovered/Not Resolved]
